FAERS Safety Report 9834823 (Version 1)
Quarter: 2014Q1

REPORT INFORMATION
  Report Type: Spontaneous
  Country: US (occurrence: US)
  Receive Date: 20140122
  Receipt Date: 20140122
  Transmission Date: 20141002
  Serious: No
  Sender: FDA-Public Use
  Company Number: US-BAUSCH-BL-2013-002530

PATIENT
  Age: 61 Year
  Sex: Female
  Weight: 55.39 kg

DRUGS (10)
  1. ALAWAY (KETOTIFEN FUMARATE OPHTHALMIC SOLUTION) [Suspect]
     Indication: EYE ALLERGY
     Dosage: 1 DROP IN EACH EYE; TWICE DAILY; OPHTHALMIC
     Route: 047
     Dates: start: 20130408, end: 20130411
  2. ALAWAY (KETOTIFEN FUMARATE OPHTHALMIC SOLUTION) [Suspect]
     Indication: EYE PRURITUS
  3. LORATADINE [Concomitant]
  4. CETIRIZINE HYDROCHLORIDE [Concomitant]
  5. ATORVASTATIN CALCIUM [Concomitant]
     Indication: BLOOD CHOLESTEROL INCREASED
  6. HYDROXYZINE [Concomitant]
     Indication: ANXIETY
  7. BUPROPION HYDROCHLORIDE [Concomitant]
     Indication: BIPOLAR DISORDER
  8. BUPROPION HYDROCHLORIDE [Concomitant]
     Indication: ANXIETY
  9. CITALOPRAM HYDROBROMIDE [Concomitant]
     Indication: BIPOLAR DISORDER
  10. COLECALCIFEROL [Concomitant]

REACTIONS (3)
  - Drug ineffective [Unknown]
  - Eye pruritus [Not Recovered/Not Resolved]
  - Condition aggravated [Not Recovered/Not Resolved]
